FAERS Safety Report 25788937 (Version 1)
Quarter: 2025Q3

REPORT INFORMATION
  Report Type: Spontaneous
  Country: EU (occurrence: EU)
  Receive Date: 20250911
  Receipt Date: 20250911
  Transmission Date: 20251020
  Serious: Yes (Other)
  Sender: IPSEN BIOPHARMACEUTICALS, INC.
  Company Number: EU-IPSEN Group, Research and Development-2025-22086

PATIENT
  Age: 11 Year
  Sex: Female
  Weight: 82 kg

DRUGS (4)
  1. LANREOTIDE ACETATE [Suspect]
     Active Substance: LANREOTIDE ACETATE
     Indication: Acromegaly
     Route: 058
     Dates: start: 20250607
  2. LANREOTIDE ACETATE [Suspect]
     Active Substance: LANREOTIDE ACETATE
     Indication: Pituitary tumour benign
  3. LANREOTIDE ACETATE [Suspect]
     Active Substance: LANREOTIDE ACETATE
     Indication: Off label use
  4. CHOLECALCIFEROL [Concomitant]
     Active Substance: CHOLECALCIFEROL
     Indication: Product used for unknown indication

REACTIONS (4)
  - Hyperthyroidism [Unknown]
  - Blood alkaline phosphatase increased [Unknown]
  - Abdominal pain upper [Unknown]
  - Off label use [Unknown]

NARRATIVE: CASE EVENT DATE: 20250903
